FAERS Safety Report 21934510 (Version 2)
Quarter: 2023Q2

REPORT INFORMATION
  Report Type: Spontaneous
  Country: FR (occurrence: None)
  Receive Date: 20230201
  Receipt Date: 20230626
  Transmission Date: 20230721
  Serious: Yes (Death)
  Sender: FDA-Public Use
  Company Number: FR-ROCHE-3274188

PATIENT
  Age: 86 Year
  Sex: Male
  Weight: 75 kg

DRUGS (3)
  1. OBINUTUZUMAB [Suspect]
     Active Substance: OBINUTUZUMAB
     Indication: Chronic lymphocytic leukaemia
     Dosage: C1J1: 100MG. FLOW RATE: 25MG/H
     Route: 042
     Dates: start: 20221121, end: 20221121
  2. OBINUTUZUMAB [Suspect]
     Active Substance: OBINUTUZUMAB
     Dosage: C1J2. RATE: 25 MG/H
     Route: 042
     Dates: start: 20221122, end: 20221122
  3. VENETOCLAX [Concomitant]
     Active Substance: VENETOCLAX

REACTIONS (4)
  - Acute respiratory distress syndrome [Fatal]
  - Pyrexia [Unknown]
  - Off label use [Unknown]
  - Infusion related reaction [Fatal]

NARRATIVE: CASE EVENT DATE: 20221121
